FAERS Safety Report 12961329 (Version 2)
Quarter: 2017Q1

REPORT INFORMATION
  Report Type: Spontaneous
  Country: PE (occurrence: PE)
  Receive Date: 20161121
  Receipt Date: 20170113
  Transmission Date: 20170428
  Serious: Yes (Other)
  Sender: FDA-Public Use
  Company Number: PE-PFIZER INC-2016533009

PATIENT
  Age: 73 Year
  Sex: Female

DRUGS (1)
  1. XALATAN [Suspect]
     Active Substance: LATANOPROST
     Indication: GLAUCOMA
     Dosage: 1 GTT, IN EACH EYE ONLY THURSDAYS AND SUNDAYS

REACTIONS (5)
  - Malaise [Unknown]
  - Cataract [Unknown]
  - Disease complication [Unknown]
  - Fall [Recovered/Resolved]
  - Spinal disorder [Unknown]
